FAERS Safety Report 6763002-6 (Version None)
Quarter: 2010Q2

REPORT INFORMATION
  Report Type: 
  Country: None (occurrence: None)
  Receive Date: 20100609
  Receipt Date: 20100604
  Transmission Date: 20101027
  Serious: Yes (Hospitalization)
  Sender: FDA-Public Use
  Company Number: NL-ROCHE-690452

PATIENT
  Sex: Female
  Weight: 78 kg

DRUGS (8)
  1. TOCILIZUMAB [Suspect]
     Indication: RHEUMATOID ARTHRITIS
     Dosage: LAST DATE PRIOR TO SAE: 17 FEBRUARY 2010. FORM INFUSION
     Route: 042
     Dates: start: 20090804
  2. TOCILIZUMAB [Suspect]
     Dosage: ENROLLED IN STUDY MA21573; FORM INFUSION
     Route: 042
     Dates: end: 20090804
  3. NEXIUM [Concomitant]
     Dates: start: 20061104
  4. NAPROXEN [Concomitant]
     Dates: start: 20061104
  5. CALCIUM/VITAMIN D3 [Concomitant]
     Dosage: DRUG: CALCI CHEW /D3
     Dates: start: 20061104
  6. PREDNISONE [Concomitant]
     Dosage: DRUG:PREDNISON
     Dates: start: 20060224
  7. FOSAMAX [Concomitant]
     Dates: start: 20060224
  8. FERROFUMARAAT [Concomitant]
     Dates: start: 20090622, end: 20090722

REACTIONS (1)
  - EPILEPSY [None]
